FAERS Safety Report 22894131 (Version 5)
Quarter: 2024Q1

REPORT INFORMATION
  Report Type: Spontaneous
  Country: DE (occurrence: DE)
  Receive Date: 20230901
  Receipt Date: 20240201
  Transmission Date: 20240410
  Serious: Yes (Other)
  Sender: FDA-Public Use
  Company Number: DE-SA-SAC20221208001205

PATIENT
  Sex: Male

DRUGS (185)
  1. ASPIRIN CALCIUM [Suspect]
     Active Substance: ASPIRIN CALCIUM
     Indication: Product used for unknown indication
     Dosage: UNK
     Route: 065
  2. ASPIRIN CALCIUM [Suspect]
     Active Substance: ASPIRIN CALCIUM
     Indication: Product used for unknown indication
  3. ASPIRIN CALCIUM [Suspect]
     Active Substance: ASPIRIN CALCIUM
     Indication: Product used for unknown indication
  4. ASPIRIN [Suspect]
     Active Substance: ASPIRIN
     Indication: Product used for unknown indication
     Dosage: UNK
     Route: 065
  5. IBUPROFEN [Suspect]
     Active Substance: IBUPROFEN
     Indication: Product used for unknown indication
     Dosage: UNK
     Route: 065
  6. ASPIRIN [Suspect]
     Active Substance: ASPIRIN
     Indication: Product used for unknown indication
     Route: 065
  7. ATROVENT [Suspect]
     Active Substance: IPRATROPIUM BROMIDE
     Indication: Pneumothorax
     Dosage: UNK
     Route: 055
     Dates: start: 2018, end: 2018
  8. ATROVENT [Suspect]
     Active Substance: IPRATROPIUM BROMIDE
     Indication: Chest discomfort
  9. ATROVENT [Suspect]
     Active Substance: IPRATROPIUM BROMIDE
     Indication: Cough
  10. ATROVENT [Suspect]
     Active Substance: IPRATROPIUM BROMIDE
     Indication: Dysphonia
  11. ATROVENT [Suspect]
     Active Substance: IPRATROPIUM BROMIDE
     Indication: Dyspnoea
  12. ATROVENT [Suspect]
     Active Substance: IPRATROPIUM BROMIDE
     Indication: Nasopharyngitis
  13. ATROVENT [Suspect]
     Active Substance: IPRATROPIUM BROMIDE
     Indication: Nasopharyngitis
  14. ATROVENT [Suspect]
     Active Substance: IPRATROPIUM BROMIDE
     Indication: Pneumothorax
  15. ATROVENT [Suspect]
     Active Substance: IPRATROPIUM BROMIDE
     Indication: Pneumothorax
  16. ATROVENT [Suspect]
     Active Substance: IPRATROPIUM BROMIDE
     Indication: Secretion discharge
  17. ATROVENT [Suspect]
     Active Substance: IPRATROPIUM BROMIDE
     Indication: Secretion discharge
  18. BISOPROLOL [Suspect]
     Active Substance: BISOPROLOL\BISOPROLOL FUMARATE
     Indication: Product used for unknown indication
     Dosage: UNK
     Route: 065
  19. BISOPROLOL [Suspect]
     Active Substance: BISOPROLOL\BISOPROLOL FUMARATE
     Indication: Product used for unknown indication
     Dosage: UNK UNK, QD
     Route: 065
     Dates: start: 20201210
  20. BIOTIN [Suspect]
     Active Substance: BIOTIN
     Indication: Product used for unknown indication
     Dosage: 1 DF, QD
     Route: 065
  21. BIOTIN [Suspect]
     Active Substance: BIOTIN
     Dosage: UNK
     Route: 065
  22. BIOTIN [Suspect]
     Active Substance: BIOTIN
     Dosage: UNK
     Route: 065
  23. BIOTIN [Suspect]
     Active Substance: BIOTIN
     Dosage: UNK
     Route: 065
  24. BIOTIN [Suspect]
     Active Substance: BIOTIN
     Dosage: UNK
     Route: 065
  25. CALCIUM CARBONATE [Suspect]
     Active Substance: CALCIUM CARBONATE
     Indication: Product used for unknown indication
     Dosage: UNK
     Route: 065
  26. CALCIUM CARBONATE [Suspect]
     Active Substance: CALCIUM CARBONATE
     Indication: Product used for unknown indication
  27. CALCIUM PANTOTHENATE [Suspect]
     Active Substance: CALCIUM PANTOTHENATE
     Indication: Product used for unknown indication
     Dosage: IN 8 HOUR
     Route: 065
  28. CALCIUM PANTOTHENATE [Suspect]
     Active Substance: CALCIUM PANTOTHENATE
     Indication: Product used for unknown indication
  29. COLESEVELAM HYDROCHLORIDE [Suspect]
     Active Substance: COLESEVELAM HYDROCHLORIDE
     Indication: Product used for unknown indication
     Dosage: UNK
     Route: 065
  30. COLESEVELAM HYDROCHLORIDE [Suspect]
     Active Substance: COLESEVELAM HYDROCHLORIDE
     Dosage: UNK
     Route: 065
  31. COLESEVELAM HYDROCHLORIDE [Suspect]
     Active Substance: COLESEVELAM HYDROCHLORIDE
     Dosage: UNK
     Route: 065
  32. CIALIS [Suspect]
     Active Substance: TADALAFIL
     Indication: Product used for unknown indication
     Dosage: UNK
     Route: 065
  33. CLOPIDOGREL BISULFATE [Suspect]
     Active Substance: CLOPIDOGREL BISULFATE
     Indication: Product used for unknown indication
     Dosage: UNK
     Route: 065
  34. CLOPIDOGREL BISULFATE [Suspect]
     Active Substance: CLOPIDOGREL BISULFATE
     Dosage: UNK
     Route: 065
  35. COLESEVELAM [Suspect]
     Active Substance: COLESEVELAM
     Indication: Product used for unknown indication
     Dosage: UNK
     Route: 065
  36. CRESTOR [Suspect]
     Active Substance: ROSUVASTATIN CALCIUM
     Indication: Product use in unapproved indication
     Dosage: UNK
     Route: 065
  37. DICLOFENAC DIETHYLAMINE [Suspect]
     Active Substance: DICLOFENAC DIETHYLAMINE
     Indication: Product used for unknown indication
     Dosage: UNK
     Route: 065
  38. DICLOFENAC DIETHYLAMINE [Suspect]
     Active Substance: DICLOFENAC DIETHYLAMINE
     Indication: Product used for unknown indication
  39. MOMETASONE [Suspect]
     Active Substance: MOMETASONE
     Indication: Product used for unknown indication
     Dosage: UNK
     Route: 065
  40. MOMETASONE [Suspect]
     Active Substance: MOMETASONE
     Dosage: UNK
     Route: 065
  41. ERGOCALCIFEROL [Suspect]
     Active Substance: ERGOCALCIFEROL
     Indication: Product used for unknown indication
     Dosage: 2000 IU, QW
     Route: 065
  42. FLOMAX [Suspect]
     Active Substance: TAMSULOSIN HYDROCHLORIDE
     Indication: Product used for unknown indication
     Dosage: UNK
     Route: 065
  43. FLUTICASONE PROPIONATE AND SALMETEROL [Suspect]
     Active Substance: FLUTICASONE PROPIONATE\SALMETEROL XINAFOATE
     Indication: Pneumothorax
     Dosage: UNK
     Route: 055
  44. FLUTICASONE PROPIONATE AND SALMETEROL [Suspect]
     Active Substance: FLUTICASONE PROPIONATE\SALMETEROL XINAFOATE
     Indication: Dysphonia
     Dosage: UNK
     Route: 065
     Dates: end: 2018
  45. FLUTICASONE PROPIONATE AND SALMETEROL [Suspect]
     Active Substance: FLUTICASONE PROPIONATE\SALMETEROL XINAFOATE
     Indication: Secretion discharge
     Dosage: UNK
     Route: 065
  46. FLUTICASONE PROPIONATE AND SALMETEROL [Suspect]
     Active Substance: FLUTICASONE PROPIONATE\SALMETEROL XINAFOATE
     Indication: Dyspnoea
  47. FLUTICASONE PROPIONATE AND SALMETEROL [Suspect]
     Active Substance: FLUTICASONE PROPIONATE\SALMETEROL XINAFOATE
     Indication: Nasopharyngitis
  48. FLUTICASONE PROPIONATE AND SALMETEROL [Suspect]
     Active Substance: FLUTICASONE PROPIONATE\SALMETEROL XINAFOATE
     Indication: Pneumothorax
  49. FLUTICASONE PROPIONATE AND SALMETEROL [Suspect]
     Active Substance: FLUTICASONE PROPIONATE\SALMETEROL XINAFOATE
     Indication: Secretion discharge
  50. IBUPROFEN [Suspect]
     Active Substance: IBUPROFEN
     Indication: Product used for unknown indication
     Dosage: UNK
     Route: 065
  51. IBUPROFEN [Suspect]
     Active Substance: IBUPROFEN
     Dosage: UNK
     Route: 065
  52. MOMETASONE FUROATE [Suspect]
     Active Substance: MOMETASONE FUROATE
     Indication: Product used for unknown indication
     Dosage: UNK
     Route: 065
  53. MAGNESIUM OROTATE [Suspect]
     Active Substance: MAGNESIUM OROTATE
     Indication: Product used for unknown indication
     Dosage: UNK
     Route: 065
  54. MAGNESIUM OROTATE [Suspect]
     Active Substance: MAGNESIUM OROTATE
     Indication: Product used for unknown indication
  55. MAGNESIUM OROTATE [Suspect]
     Active Substance: MAGNESIUM OROTATE
     Indication: Product used for unknown indication
     Dosage: UNK
     Route: 065
  56. MAGNESIUM OROTATE [Suspect]
     Active Substance: MAGNESIUM OROTATE
     Indication: Product used for unknown indication
     Dosage: UNK
     Route: 065
  57. MAGNESIUM OROTATE [Suspect]
     Active Substance: MAGNESIUM OROTATE
     Dosage: UNK
     Route: 065
  58. MOMETASONE FUROATE [Suspect]
     Active Substance: MOMETASONE FUROATE
     Indication: Product used for unknown indication
     Dosage: 1 DRP IN 0.5 DAY
     Route: 045
  59. MOMETASONE FUROATE [Suspect]
     Active Substance: MOMETASONE FUROATE
     Dosage: 1 IN 0.5 DAY
     Route: 045
  60. MOMETASONE FUROATE [Suspect]
     Active Substance: MOMETASONE FUROATE
     Indication: Product used for unknown indication
     Dosage: UNK, QD
     Route: 045
  61. MOMETASONE FUROATE [Suspect]
     Active Substance: MOMETASONE FUROATE
     Dosage: UNK, QD
     Route: 065
  62. AMBROXOL HYDROCHLORIDE [Suspect]
     Active Substance: AMBROXOL HYDROCHLORIDE
     Indication: Product used for unknown indication
     Dosage: UNK
     Route: 055
  63. AMBROXOL HYDROCHLORIDE [Suspect]
     Active Substance: AMBROXOL HYDROCHLORIDE
     Indication: Product used for unknown indication
  64. SALMETEROL XINAFOATE [Suspect]
     Active Substance: SALMETEROL XINAFOATE
     Indication: Cough
     Dosage: UNK
     Route: 055
     Dates: start: 2018, end: 2018
  65. SALMETEROL XINAFOATE [Suspect]
     Active Substance: SALMETEROL XINAFOATE
     Indication: Dysphonia
     Dosage: UNK
     Route: 065
  66. SALMETEROL XINAFOATE [Suspect]
     Active Substance: SALMETEROL XINAFOATE
     Indication: Chest discomfort
  67. SALMETEROL XINAFOATE [Suspect]
     Active Substance: SALMETEROL XINAFOATE
     Indication: Dyspnoea
  68. SALMETEROL XINAFOATE [Suspect]
     Active Substance: SALMETEROL XINAFOATE
     Indication: Nasopharyngitis
  69. SALMETEROL XINAFOATE [Suspect]
     Active Substance: SALMETEROL XINAFOATE
     Indication: Secretion discharge
  70. SOAP [Suspect]
     Active Substance: SOAP
     Indication: Asthma
     Dosage: UNK
     Route: 065
  71. SOAP [Suspect]
     Active Substance: SOAP
     Indication: Bronchitis
  72. SOAP [Suspect]
     Active Substance: SOAP
     Indication: Cough
  73. SOAP [Suspect]
     Active Substance: SOAP
     Indication: Dysphonia
  74. SOAP [Suspect]
     Active Substance: SOAP
     Indication: Dyspnoea
  75. SOAP [Suspect]
     Active Substance: SOAP
     Indication: Nasopharyngitis
  76. SOAP [Suspect]
     Active Substance: SOAP
     Indication: Pneumothorax
  77. SOAP [Suspect]
     Active Substance: SOAP
     Indication: Secretion discharge
  78. MAGNESIUM ASPARTATE\POTASSIUM ASPARTATE [Suspect]
     Active Substance: MAGNESIUM ASPARTATE\POTASSIUM ASPARTATE
     Indication: Product used for unknown indication
     Dosage: UNK
     Route: 065
  79. MAGNESIUM ASPARTATE\POTASSIUM ASPARTATE [Suspect]
     Active Substance: MAGNESIUM ASPARTATE\POTASSIUM ASPARTATE
     Dosage: UNK
     Route: 065
  80. PRALUENT [Suspect]
     Active Substance: ALIROCUMAB
     Indication: Product used for unknown indication
     Dosage: UNK
     Route: 065
  81. PRALUENT [Suspect]
     Active Substance: ALIROCUMAB
     Indication: Product used for unknown indication
  82. CALCIUM PANTOTHENATE [Suspect]
     Active Substance: CALCIUM PANTOTHENATE
     Indication: Product used for unknown indication
     Dosage: UNK
     Route: 065
  83. HERBALS [Suspect]
     Active Substance: HERBALS
     Indication: Product used for unknown indication
     Dosage: UNK
     Route: 065
  84. RIVAROXABAN [Suspect]
     Active Substance: RIVAROXABAN
     Indication: Product used for unknown indication
     Dosage: UNK
     Route: 065
  85. RIVAROXABAN [Suspect]
     Active Substance: RIVAROXABAN
     Indication: Product used for unknown indication
  86. ROSUVASTATIN CALCIUM [Suspect]
     Active Substance: ROSUVASTATIN CALCIUM
     Indication: Product used for unknown indication
     Dosage: UNK
     Route: 065
  87. ROSUVASTATIN CALCIUM [Suspect]
     Active Substance: ROSUVASTATIN CALCIUM
     Indication: Product used for unknown indication
  88. REPATHA [Suspect]
     Active Substance: EVOLOCUMAB
     Indication: Product used for unknown indication
     Dosage: 1 DOSAGE FORM, QW
     Route: 065
  89. REPATHA [Suspect]
     Active Substance: EVOLOCUMAB
     Dosage: 1 DOSAGE FORM, QW
     Route: 065
  90. REPATHA [Suspect]
     Active Substance: EVOLOCUMAB
     Dosage: 1 DOSAGE FORM, QW
     Route: 065
  91. REPATHA [Suspect]
     Active Substance: EVOLOCUMAB
     Dosage: 1 DOSAGE FORM, QW
     Route: 065
  92. REPATHA [Suspect]
     Active Substance: EVOLOCUMAB
     Dosage: UNK
     Route: 065
  93. REPATHA [Suspect]
     Active Substance: EVOLOCUMAB
     Dosage: UNK, QW
     Route: 065
  94. ALBUTEROL SULFATE [Suspect]
     Active Substance: ALBUTEROL SULFATE
     Indication: Pneumothorax
     Dosage: UNK
     Route: 065
  95. ALBUTEROL SULFATE [Suspect]
     Active Substance: ALBUTEROL SULFATE
     Indication: Chest discomfort
  96. ALBUTEROL SULFATE [Suspect]
     Active Substance: ALBUTEROL SULFATE
     Indication: Cough
  97. ALBUTEROL SULFATE [Suspect]
     Active Substance: ALBUTEROL SULFATE
     Indication: Dysphonia
  98. ALBUTEROL SULFATE [Suspect]
     Active Substance: ALBUTEROL SULFATE
     Indication: Dyspnoea
  99. ALBUTEROL SULFATE [Suspect]
     Active Substance: ALBUTEROL SULFATE
     Indication: Nasopharyngitis
  100. ALBUTEROL SULFATE [Suspect]
     Active Substance: ALBUTEROL SULFATE
     Indication: Pneumothorax
  101. ALBUTEROL SULFATE [Suspect]
     Active Substance: ALBUTEROL SULFATE
     Indication: Productive cough
  102. ALBUTEROL SULFATE [Suspect]
     Active Substance: ALBUTEROL SULFATE
     Indication: Secretion discharge
  103. ALBUTEROL SULFATE [Suspect]
     Active Substance: ALBUTEROL SULFATE
     Indication: Secretion discharge
  104. ALBUTEROL SULFATE [Suspect]
     Active Substance: ALBUTEROL SULFATE
     Indication: Secretion discharge
  105. ALBUTEROL SULFATE [Suspect]
     Active Substance: ALBUTEROL SULFATE
     Indication: Secretion discharge
  106. SALMETEROL XINAFOATE [Suspect]
     Active Substance: SALMETEROL XINAFOATE
     Indication: Cough
     Dosage: UNK
     Route: 055
  107. SALMETEROL XINAFOATE [Suspect]
     Active Substance: SALMETEROL XINAFOATE
     Indication: Dysphonia
  108. SALMETEROL XINAFOATE [Suspect]
     Active Substance: SALMETEROL XINAFOATE
     Indication: Dyspnoea
  109. SALMETEROL XINAFOATE [Suspect]
     Active Substance: SALMETEROL XINAFOATE
     Indication: Nasopharyngitis
  110. SALMETEROL XINAFOATE [Suspect]
     Active Substance: SALMETEROL XINAFOATE
     Indication: Secretion discharge
  111. SALMETEROL XINAFOATE [Suspect]
     Active Substance: SALMETEROL XINAFOATE
     Indication: Tension
  112. HERBALS\PHENYL SALICYLATE [Suspect]
     Active Substance: HERBALS\PHENYL SALICYLATE
     Indication: Asthma
     Dosage: 10.0 DROP(1 IN 1 DAY)
     Route: 065
  113. HERBALS\PHENYL SALICYLATE [Suspect]
     Active Substance: HERBALS\PHENYL SALICYLATE
     Indication: Bronchitis
     Dosage: 10 DROPS, QD
     Route: 065
  114. TADALAFIL [Suspect]
     Active Substance: TADALAFIL
     Indication: Product used for unknown indication
     Dosage: UNK
     Route: 065
  115. TADALAFIL [Suspect]
     Active Substance: TADALAFIL
     Indication: Product used for unknown indication
     Dosage: UNK
     Route: 065
  116. TADALAFIL [Suspect]
     Active Substance: TADALAFIL
     Dosage: UNK
     Route: 065
  117. TAMSULOSIN HYDROCHLORIDE [Suspect]
     Active Substance: TAMSULOSIN HYDROCHLORIDE
     Indication: Product used for unknown indication
     Dosage: UNK
     Route: 065
  118. TAMSULOSIN HYDROCHLORIDE [Suspect]
     Active Substance: TAMSULOSIN HYDROCHLORIDE
     Indication: Product used for unknown indication
  119. PHENYL AMINOSALICYLATE [Suspect]
     Active Substance: PHENYL AMINOSALICYLATE
     Indication: Product used for unknown indication
     Route: 065
  120. GINKGO [Suspect]
     Active Substance: GINKGO
     Dosage: UNK
     Route: 065
  121. GINKGO [Suspect]
     Active Substance: GINKGO
     Indication: Product used for unknown indication
     Dosage: UNK
     Route: 065
  122. GINKGO [Suspect]
     Active Substance: GINKGO
     Indication: Asthma
     Dosage: UNK
     Route: 065
  123. GINKGO [Suspect]
     Active Substance: GINKGO
     Indication: Bronchitis
  124. TOCOPHEROL [Suspect]
     Active Substance: TOCOPHEROL
     Dosage: 2000 IU, QW
     Route: 065
  125. TOCOPHEROL [Suspect]
     Active Substance: TOCOPHEROL
     Indication: Product used for unknown indication
     Dosage: 2000 IU, QW
     Route: 065
  126. MAGNESIUM ASPARTATE\POTASSIUM ASPARTATE [Suspect]
     Active Substance: MAGNESIUM ASPARTATE\POTASSIUM ASPARTATE
     Dosage: UNK
     Route: 065
  127. MAGNESIUM ASPARTATE\POTASSIUM ASPARTATE [Suspect]
     Active Substance: MAGNESIUM ASPARTATE\POTASSIUM ASPARTATE
     Indication: Product use in unapproved indication
     Dosage: UNK
     Route: 065
  128. VOLTAREN [Suspect]
     Active Substance: DICLOFENAC SODIUM
     Indication: Product used for unknown indication
     Dosage: UNK
     Route: 065
  129. FLUTICASONE PROPIONATE\SALMETEROL XINAFOATE [Suspect]
     Active Substance: FLUTICASONE PROPIONATE\SALMETEROL XINAFOATE
     Indication: Cough
     Dosage: UNK
     Route: 055
     Dates: start: 2018, end: 2018
  130. FLUTICASONE PROPIONATE\SALMETEROL XINAFOATE [Suspect]
     Active Substance: FLUTICASONE PROPIONATE\SALMETEROL XINAFOATE
     Indication: Product used for unknown indication
     Dosage: UNK
     Route: 065
  131. FLUTICASONE PROPIONATE\SALMETEROL XINAFOATE [Suspect]
     Active Substance: FLUTICASONE PROPIONATE\SALMETEROL XINAFOATE
     Indication: Secretion discharge
     Dosage: UNK
     Route: 065
  132. FLUTICASONE PROPIONATE\SALMETEROL XINAFOATE [Suspect]
     Active Substance: FLUTICASONE PROPIONATE\SALMETEROL XINAFOATE
     Indication: Dysphonia
  133. FLUTICASONE PROPIONATE\SALMETEROL XINAFOATE [Suspect]
     Active Substance: FLUTICASONE PROPIONATE\SALMETEROL XINAFOATE
     Indication: Dyspnoea
  134. FLUTICASONE PROPIONATE\SALMETEROL XINAFOATE [Suspect]
     Active Substance: FLUTICASONE PROPIONATE\SALMETEROL XINAFOATE
     Indication: Pneumothorax
  135. VITAMIN D [Suspect]
     Active Substance: VITAMIN D NOS
     Indication: Product used for unknown indication
     Dosage: UNK
     Route: 065
  136. VITAMIN E [Suspect]
     Active Substance: .ALPHA.-TOCOPHEROL
     Indication: Product used for unknown indication
     Dosage: UNK
     Route: 065
  137. VITAMIN E [Suspect]
     Active Substance: .ALPHA.-TOCOPHEROL
     Dosage: UNK, Q2W
     Route: 065
  138. VITAMIN E [Suspect]
     Active Substance: .ALPHA.-TOCOPHEROL
     Dosage: UNK, Q2W
     Route: 065
  139. VITAMIN E [Suspect]
     Active Substance: .ALPHA.-TOCOPHEROL
     Indication: Product used for unknown indication
     Dosage: UNK
     Route: 065
  140. OLMESARTAN MEDOXOMIL [Suspect]
     Active Substance: OLMESARTAN MEDOXOMIL
     Indication: Product used for unknown indication
     Dosage: UNK
     Route: 065
  141. OLMESARTAN MEDOXOMIL [Suspect]
     Active Substance: OLMESARTAN MEDOXOMIL
     Dosage: 500 IU, Q12H
     Route: 065
  142. XARELTO [Suspect]
     Active Substance: RIVAROXABAN
     Indication: Product used for unknown indication
     Dosage: UNK
     Route: 065
  143. XARELTO [Suspect]
     Active Substance: RIVAROXABAN
     Indication: Product used for unknown indication
  144. XARELTO [Suspect]
     Active Substance: RIVAROXABAN
     Indication: Product used for unknown indication
  145. ASPIRIN CALCIUM [Concomitant]
     Active Substance: ASPIRIN CALCIUM
     Indication: Product used for unknown indication
     Dosage: UNK
     Route: 065
  146. ASPIRIN CALCIUM [Concomitant]
     Active Substance: ASPIRIN CALCIUM
     Indication: Product used for unknown indication
     Dosage: UNK
     Route: 065
  147. AMBROXOL HYDROCHLORIDE [Concomitant]
     Active Substance: AMBROXOL HYDROCHLORIDE
     Indication: Product used for unknown indication
     Dosage: UNK
     Route: 065
  148. AMBROXOL HYDROCHLORIDE [Concomitant]
     Active Substance: AMBROXOL HYDROCHLORIDE
     Route: 065
  149. BISOPROLOL FUMARATE [Concomitant]
     Active Substance: BISOPROLOL FUMARATE
     Indication: Product used for unknown indication
     Dosage: 1 DOSAGE FORM, QD
     Route: 065
  150. BISOPROLOL FUMARATE [Concomitant]
     Active Substance: BISOPROLOL FUMARATE
     Dosage: UNK
     Route: 065
  151. CALCIUM [Concomitant]
     Active Substance: CALCIUM
     Indication: Product used for unknown indication
     Dosage: UNK
     Route: 065
  152. CALCIUM [Concomitant]
     Active Substance: CALCIUM
     Dosage: UNK
     Route: 065
  153. CLOPIDOGREL [Concomitant]
     Active Substance: CLOPIDOGREL BISULFATE
     Indication: Product used for unknown indication
     Dosage: UNK
     Route: 065
  154. CLOPIDOGREL [Concomitant]
     Active Substance: CLOPIDOGREL BISULFATE
     Dosage: UNK
     Route: 065
  155. BISOPROLOL FUMARATE [Concomitant]
     Active Substance: BISOPROLOL FUMARATE
     Indication: Product used for unknown indication
     Dosage: 1 DF, QD
     Route: 065
  156. DICLOFENAC [Concomitant]
     Active Substance: DICLOFENAC
     Indication: Product used for unknown indication
     Dosage: UNK
     Route: 065
  157. DICLOFENAC [Concomitant]
     Active Substance: DICLOFENAC
     Dosage: UNK
     Route: 065
  158. EVOLOCUMAB [Concomitant]
     Active Substance: EVOLOCUMAB
     Indication: Product used for unknown indication
     Dosage: UNK
     Route: 065
  159. EVOLOCUMAB [Concomitant]
     Active Substance: EVOLOCUMAB
     Dosage: UNK
     Route: 065
  160. MAGNESIUM ASPARTATE [Concomitant]
     Active Substance: MAGNESIUM ASPARTATE
     Indication: Product used for unknown indication
     Dosage: 2 DOSAGE FORM
     Route: 065
  161. MAGNESIUM ASPARTATE [Concomitant]
     Active Substance: MAGNESIUM ASPARTATE
     Dosage: UNK
     Route: 065
  162. OLMESARTAN MEDOXOMIL [Concomitant]
     Active Substance: OLMESARTAN MEDOXOMIL
     Indication: Product used for unknown indication
     Dosage: UNK
     Route: 065
  163. OLMESARTAN MEDOXOMIL [Concomitant]
     Active Substance: OLMESARTAN MEDOXOMIL
     Dosage: UNK
     Route: 065
  164. PREDNISOLONE [Concomitant]
     Active Substance: PREDNISOLONE
     Indication: Product used for unknown indication
     Dosage: UNK
     Route: 065
  165. PREDNISOLONE [Concomitant]
     Active Substance: PREDNISOLONE
     Dosage: UNK
     Route: 065
  166. REPATHA [Concomitant]
     Active Substance: EVOLOCUMAB
     Indication: Product used for unknown indication
     Dosage: 1 DF, QW
     Route: 065
  167. REPATHA [Concomitant]
     Active Substance: EVOLOCUMAB
     Dosage: 1 DF, QW
     Route: 065
  168. REPATHA [Concomitant]
     Active Substance: EVOLOCUMAB
     Dosage: 1 IN 1 WEEK
     Route: 065
  169. REPATHA [Concomitant]
     Active Substance: EVOLOCUMAB
     Dosage: 1 IN 56 HOUR
     Route: 065
  170. ALBUTEROL SULFATE [Concomitant]
     Active Substance: ALBUTEROL SULFATE
     Indication: Secretion discharge
     Dosage: UNK
     Route: 065
  171. ALBUTEROL SULFATE [Concomitant]
     Active Substance: ALBUTEROL SULFATE
     Indication: Cough
  172. ALBUTEROL SULFATE [Concomitant]
     Active Substance: ALBUTEROL SULFATE
     Indication: Dysphonia
  173. ALBUTEROL SULFATE [Concomitant]
     Active Substance: ALBUTEROL SULFATE
     Indication: Dyspnoea
  174. ALBUTEROL SULFATE [Concomitant]
     Active Substance: ALBUTEROL SULFATE
     Indication: Nasopharyngitis
  175. ALBUTEROL SULFATE [Concomitant]
     Active Substance: ALBUTEROL SULFATE
     Indication: Pneumothorax
  176. FLUTICASONE PROPIONATE\SALMETEROL XINAFOATE [Concomitant]
     Active Substance: FLUTICASONE PROPIONATE\SALMETEROL XINAFOATE
     Indication: Dyspnoea
     Dosage: UNK
     Route: 065
  177. FLUTICASONE PROPIONATE\SALMETEROL XINAFOATE [Concomitant]
     Active Substance: FLUTICASONE PROPIONATE\SALMETEROL XINAFOATE
     Indication: Cough
  178. FLUTICASONE PROPIONATE\SALMETEROL XINAFOATE [Concomitant]
     Active Substance: FLUTICASONE PROPIONATE\SALMETEROL XINAFOATE
     Indication: Dysphonia
  179. FLUTICASONE PROPIONATE\SALMETEROL XINAFOATE [Concomitant]
     Active Substance: FLUTICASONE PROPIONATE\SALMETEROL XINAFOATE
     Indication: Nasopharyngitis
  180. FLUTICASONE PROPIONATE\SALMETEROL XINAFOATE [Concomitant]
     Active Substance: FLUTICASONE PROPIONATE\SALMETEROL XINAFOATE
     Indication: Pneumothorax
  181. FLUTICASONE PROPIONATE\SALMETEROL XINAFOATE [Concomitant]
     Active Substance: FLUTICASONE PROPIONATE\SALMETEROL XINAFOATE
     Indication: Secretion discharge
  182. HERBALS\PHENYL SALICYLATE [Concomitant]
     Active Substance: HERBALS\PHENYL SALICYLATE
     Indication: Bronchitis
     Dosage: 10 DROPS IN 1 DAY QD
     Route: 065
  183. HERBALS\PHENYL SALICYLATE [Concomitant]
     Active Substance: HERBALS\PHENYL SALICYLATE
     Indication: Asthma
     Dosage: 10 DROPS IN 1 DAY QD
     Route: 065
  184. VITAMIN D [Concomitant]
     Active Substance: VITAMIN D NOS
     Indication: Product used for unknown indication
     Dosage: UNK
     Route: 065
  185. VOLTAREN [Concomitant]
     Active Substance: DICLOFENAC SODIUM
     Indication: Product used for unknown indication
     Dosage: UNK
     Route: 065

REACTIONS (35)
  - Pneumothorax [Not Recovered/Not Resolved]
  - Dyspnoea exertional [Unknown]
  - Obstructive airways disorder [Unknown]
  - Eosinophilia [Unknown]
  - Fractional exhaled nitric oxide increased [Unknown]
  - Wheezing [Unknown]
  - Sensation of foreign body [Unknown]
  - Chest discomfort [Unknown]
  - Dysphonia [Not Recovered/Not Resolved]
  - Obstructive sleep apnoea syndrome [Unknown]
  - Nasopharyngitis [Unknown]
  - Myoglobin blood increased [Unknown]
  - Plantar fasciitis [Unknown]
  - Atrial fibrillation [Recovered/Resolved]
  - Brain natriuretic peptide increased [Unknown]
  - Muscle spasms [Unknown]
  - Coronary artery disease [Unknown]
  - Cardiac disorder [Not Recovered/Not Resolved]
  - Cough [Not Recovered/Not Resolved]
  - Dyspnoea [Unknown]
  - Exostosis [Unknown]
  - Secretion discharge [Unknown]
  - Fractional exhaled nitric oxide increased [Unknown]
  - Muscle spasms [Unknown]
  - Exostosis [Unknown]
  - Muscle spasms [Unknown]
  - Cough [Not Recovered/Not Resolved]
  - Brain natriuretic peptide increased [Unknown]
  - Myoglobin blood increased [Unknown]
  - Sensation of foreign body [Unknown]
  - Dysphonia [Not Recovered/Not Resolved]
  - Atrial fibrillation [Unknown]
  - Pneumothorax [Not Recovered/Not Resolved]
  - Wheezing [Unknown]
  - Dyspnoea exertional [Unknown]

NARRATIVE: CASE EVENT DATE: 20180101
